FAERS Safety Report 7176286-X (Version None)
Quarter: 2010Q4

REPORT INFORMATION
  Report Type: 
  Country: None (occurrence: None)
  Receive Date: 20101220
  Receipt Date: 20101208
  Transmission Date: 20110411
  Serious: Yes (Hospitalization)
  Sender: FDA-Public Use
  Company Number: JP-CELGENEUS-087-21880-10120755

PATIENT
  Sex: Male
  Weight: 53 kg

DRUGS (15)
  1. REVLIMID [Suspect]
     Indication: MULTIPLE MYELOMA
     Route: 048
     Dates: start: 20100915, end: 20100928
  2. LENADEX [Suspect]
     Indication: MULTIPLE MYELOMA
     Route: 048
     Dates: start: 20100916, end: 20100927
  3. ASPIRIN [Concomitant]
     Indication: PROPHYLAXIS
     Route: 048
     Dates: start: 20100915, end: 20100929
  4. TAKEPRON [Concomitant]
     Route: 048
     Dates: start: 20100915
  5. BAKTAR [Concomitant]
     Indication: PROPHYLAXIS
     Route: 048
     Dates: start: 20100915, end: 20100929
  6. LENDORMIN D [Concomitant]
     Route: 048
     Dates: start: 20100915
  7. GASMOTIN [Concomitant]
     Route: 048
     Dates: start: 20100915
  8. URSO 250 [Concomitant]
     Route: 048
     Dates: start: 20100915
  9. ALLOID G [Concomitant]
     Route: 048
     Dates: start: 20101001, end: 20101005
  10. CALBLOCK [Concomitant]
     Indication: RENAL FAILURE CHRONIC
     Route: 048
     Dates: start: 20100915
  11. ALFAROL [Concomitant]
     Indication: RENAL FAILURE CHRONIC
     Route: 048
     Dates: start: 20100915
  12. NU-LOTAN [Concomitant]
     Indication: RENAL FAILURE CHRONIC
     Route: 048
     Dates: start: 20100915
  13. POSTERISAN [Concomitant]
     Route: 061
     Dates: start: 20100915
  14. KREMEZIN [Concomitant]
     Indication: RENAL FAILURE CHRONIC
     Route: 048
     Dates: start: 20100915
  15. ZOVIRAX [Concomitant]
     Indication: PROPHYLAXIS
     Route: 048
     Dates: start: 20100917, end: 20100929

REACTIONS (3)
  - HICCUPS [None]
  - LIVER DISORDER [None]
  - NAUSEA [None]
